FAERS Safety Report 4421184-5 (Version None)
Quarter: 2004Q3

REPORT INFORMATION
  Report Type: 
  Country: None (occurrence: None)
  Receive Date: 20040804
  Receipt Date: 20040719
  Transmission Date: 20050211
  Serious: Yes (Other)
  Sender: FDA-Public Use
  Company Number: 2004051581

PATIENT
  Sex: Female

DRUGS (1)
  1. VIAGRA [Suspect]
     Indication: PULMONARY HYPERTENSION
     Dosage: 75 MG (25 MG, 1 IN 1 D), ORAL
     Route: 048
     Dates: start: 20030801

REACTIONS (2)
  - OFF LABEL USE [None]
  - UNEXPECTED THERAPEUTIC DRUG EFFECT [None]
